FAERS Safety Report 11122796 (Version 2)
Quarter: 2015Q2

REPORT INFORMATION
  Report Type: Spontaneous
  Country: US (occurrence: US)
  Receive Date: 20150519
  Receipt Date: 20150610
  Transmission Date: 20150821
  Serious: Yes (Other)
  Sender: FDA-Public Use
  Company Number: US-PFIZER INC-2015164243

PATIENT
  Age: 57 Year
  Sex: Female
  Weight: 81 kg

DRUGS (7)
  1. MOBIC [Concomitant]
     Active Substance: MELOXICAM
     Dosage: 7.5 MG, UNK
  2. VICODIN [Concomitant]
     Active Substance: ACETAMINOPHEN\HYDROCODONE BITARTRATE
     Dosage: UNK
  3. XELJANZ [Suspect]
     Active Substance: TOFACITINIB CITRATE
     Indication: RHEUMATOID ARTHRITIS
     Dosage: 5 MG, 1X/DAY
     Route: 048
  4. LOTENSINE [Concomitant]
     Dosage: 10 MG, UNK
  5. VITAMIN D [Concomitant]
     Active Substance: CHOLECALCIFEROL
     Dosage: 400 IU, UNK
  6. XELJANZ [Suspect]
     Active Substance: TOFACITINIB CITRATE
     Dosage: 5 MG, 2X/DAY
     Route: 048
     Dates: start: 20150512
  7. NORVASC [Concomitant]
     Active Substance: AMLODIPINE BESYLATE
     Dosage: 5 MG, UNK

REACTIONS (5)
  - Drug ineffective [Recovering/Resolving]
  - Rheumatoid arthritis [Recovering/Resolving]
  - Drug effect incomplete [Unknown]
  - Arthralgia [Unknown]
  - Influenza [Recovered/Resolved]
